APPROVED DRUG PRODUCT: CLORAZEPATE DIPOTASSIUM
Active Ingredient: CLORAZEPATE DIPOTASSIUM
Strength: 15MG
Dosage Form/Route: TABLET;ORAL
Application: A075731 | Product #001 | TE Code: AB
Applicant: TARO PHARMACEUTICAL INDUSTRIES LTD
Approved: Apr 27, 2000 | RLD: No | RS: No | Type: RX